FAERS Safety Report 8838418 (Version 1)
Quarter: 2012Q4

REPORT INFORMATION
  Report Type: 
  Country: US (occurrence: US)
  Receive Date: 20121012
  Receipt Date: 20121012
  Transmission Date: 20130627
  Serious: No
  Sender: FDA-Public Use
  Company Number: US-BAYER-2012-104876

PATIENT
  Age: 85 Year
  Sex: Female
  Weight: 56.69 kg

DRUGS (10)
  1. ALEVE CAPLET/TABLET,MIDOL EXTENDED RELIEF CAPLET [Suspect]
     Indication: PAIN IN EXTREMITY
     Dosage: 2 DF, PRN
     Route: 048
     Dates: start: 20120930
  2. HYDROCHLOROTHIAZIDE [Concomitant]
  3. FISH OIL [Concomitant]
  4. MULTIVITAMINS [Concomitant]
  5. VISION OCUVIETEST [Concomitant]
  6. ALLERGY MEDICATION [Concomitant]
  7. ASPIRIN [Concomitant]
     Dosage: 81 mg, UNK
  8. ZOLPIDEM [Concomitant]
  9. LOVASTATIN [Concomitant]
  10. IRON [Concomitant]

REACTIONS (1)
  - Pain in extremity [None]
